FAERS Safety Report 10818379 (Version 3)
Quarter: 2015Q3

REPORT INFORMATION
  Report Type: Spontaneous
  Country: US (occurrence: US)
  Receive Date: 20150218
  Receipt Date: 20150707
  Transmission Date: 20151125
  Serious: Yes (Hospitalization)
  Sender: FDA-Public Use
  Company Number: US-BAYER-2015-024625

PATIENT
  Age: 24 Year
  Sex: Female
  Weight: 56.69 kg

DRUGS (3)
  1. DOXYCYCLINE. [Concomitant]
     Active Substance: DOXYCYCLINE
  2. NUVARING [Concomitant]
     Active Substance: ETHINYL ESTRADIOL\ETONOGESTREL
     Dosage: UNK
     Dates: start: 201210
  3. MIRENA [Suspect]
     Active Substance: LEVONORGESTREL
     Indication: CONTRACEPTION
     Dosage: 20 MCG/24HR, CONT
     Route: 015
     Dates: start: 20120321, end: 20121029

REACTIONS (13)
  - Abdominal pain [None]
  - Uterine perforation [None]
  - Device issue [None]
  - Genital haemorrhage [None]
  - Emotional distress [None]
  - Anxiety [None]
  - Pelvic pain [None]
  - Injury [None]
  - Depressed mood [None]
  - Fear [None]
  - Internal injury [None]
  - Medical device discomfort [None]
  - Depression [None]

NARRATIVE: CASE EVENT DATE: 201210
